APPROVED DRUG PRODUCT: DROPERIDOL
Active Ingredient: DROPERIDOL
Strength: 2.5MG/ML
Dosage Form/Route: INJECTABLE;INJECTION
Application: A072272 | Product #001
Applicant: HOSPIRA INC
Approved: Aug 31, 1995 | RLD: No | RS: No | Type: DISCN